FAERS Safety Report 4543868-0 (Version None)
Quarter: 2005Q1

REPORT INFORMATION
  Report Type: 
  Country: None (occurrence: None)
  Receive Date: 20050103
  Receipt Date: 20040830
  Transmission Date: 20050727
  Serious: Yes (Other)
  Sender: FDA-Public Use
  Company Number: GXKR2004GB00484

PATIENT
  Age: 46 Year
  Sex: Female

DRUGS (2)
  1. DIAZEPAM [Suspect]
     Dosage: 60 MG, QD, ORAL
     Route: 048
     Dates: start: 20000101
  2. EQUANIL [Suspect]
     Indication: AGORAPHOBIA
     Dosage: 400 MG, 9QD, ORAL
     Route: 048
     Dates: start: 19970101

REACTIONS (6)
  - BLOOD ALKALINE PHOSPHATASE INCREASED [None]
  - GAMMA-GLUTAMYLTRANSFERASE INCREASED [None]
  - HEPATOMEGALY [None]
  - LIVER DISORDER [None]
  - MACROCYTOSIS [None]
  - MEAN CELL VOLUME INCREASED [None]
